FAERS Safety Report 4675234-1 (Version None)
Quarter: 2005Q2

REPORT INFORMATION
  Report Type: 
  Country: None (occurrence: None)
  Receive Date: 20050527
  Receipt Date: 20050222
  Transmission Date: 20051028
  Serious: Yes (Other)
  Sender: FDA-Public Use
  Company Number: PHBS2005BE02815

PATIENT
  Age: 76 Year
  Sex: Female

DRUGS (7)
  1. ZOMETA [Suspect]
     Indication: MULTIPLE MYELOMA
     Dosage: 4 MG, QMO
     Route: 042
     Dates: start: 20031219, end: 20050214
  2. ZOMETA [Suspect]
     Dosage: 4 MG, ONCE/SINGLE
     Dates: start: 20050503, end: 20050503
  3. VINCRISTINE + ADRIAMYCIN + DEXAMETHASONE [Concomitant]
     Dates: start: 20031222, end: 20040507
  4. ENDOXAN [Concomitant]
     Dosage: UNK, UNK
     Route: 065
     Dates: start: 20040507
  5. MELPHALAN [Concomitant]
     Route: 065
     Dates: start: 20040608
  6. BONE MARROW TRANSPLANT [Concomitant]
     Dosage: STEM CELL COLLECTION
     Dates: start: 20040507
  7. BONE MARROW TRANSPLANT [Concomitant]
     Dosage: AUTOLOGOUS STEM CELL TRANSPLANT
     Dates: start: 20040608

REACTIONS (5)
  - ASEPTIC NECROSIS BONE [None]
  - IMPAIRED HEALING [None]
  - MUCOSAL INFLAMMATION [None]
  - TOOTH EXTRACTION [None]
  - WOUND DEBRIDEMENT [None]
